FAERS Safety Report 23401292 (Version 1)
Quarter: 2024Q1

REPORT INFORMATION
  Report Type: Other
  Country: US (occurrence: None)
  Receive Date: 20240115
  Receipt Date: 20240115
  Transmission Date: 20240409
  Serious: Yes (Other)
  Sender: FDA-Public Use
  Company Number: US-ROCHE-3487982

PATIENT
  Age: 23 Year
  Sex: Female

DRUGS (13)
  1. VEMURAFENIB [Suspect]
     Active Substance: VEMURAFENIB
     Indication: Astrocytoma malignant
     Route: 065
  2. VEMURAFENIB [Suspect]
     Active Substance: VEMURAFENIB
     Indication: Metastases to meninges
  3. COBIMETINIB [Suspect]
     Active Substance: COBIMETINIB
     Indication: Astrocytoma malignant
     Route: 065
  4. COBIMETINIB [Suspect]
     Active Substance: COBIMETINIB
     Indication: Metastases to meninges
  5. METHOTREXATE [Suspect]
     Active Substance: METHOTREXATE
     Indication: Astrocytoma malignant
     Route: 037
  6. METHOTREXATE [Suspect]
     Active Substance: METHOTREXATE
     Indication: Metastases to meninges
  7. TOPOTECAN [Suspect]
     Active Substance: TOPOTECAN HYDROCHLORIDE
     Indication: Astrocytoma malignant
     Route: 037
  8. TOPOTECAN [Suspect]
     Active Substance: TOPOTECAN HYDROCHLORIDE
     Indication: Metastases to meninges
  9. CYTARABINE [Suspect]
     Active Substance: CYTARABINE
     Indication: Astrocytoma malignant
     Route: 037
  10. CYTARABINE [Suspect]
     Active Substance: CYTARABINE
     Indication: Metastases to meninges
  11. THIOTEPA [Suspect]
     Active Substance: THIOTEPA
     Indication: Astrocytoma malignant
     Route: 037
  12. THIOTEPA [Suspect]
     Active Substance: THIOTEPA
     Indication: Metastases to meninges
  13. TEMOZOLOMIDE [Concomitant]
     Active Substance: TEMOZOLOMIDE

REACTIONS (5)
  - Neutropenia [Recovering/Resolving]
  - Anaemia [Recovering/Resolving]
  - Dermatitis acneiform [Recovering/Resolving]
  - Nausea [Recovering/Resolving]
  - Vomiting [Recovering/Resolving]
